FAERS Safety Report 26032087 (Version 1)
Quarter: 2025Q4

REPORT INFORMATION
  Report Type: Spontaneous
  Country: US (occurrence: US)
  Receive Date: 20251112
  Receipt Date: 20251112
  Transmission Date: 20260118
  Serious: No
  Sender: SLATE RUN
  Company Number: US-SLATERUN-2025SRSPO00206

PATIENT
  Age: 76 Year
  Sex: Female

DRUGS (1)
  1. DILTIAZEM HYDROCHLORIDE [Suspect]
     Active Substance: DILTIAZEM HYDROCHLORIDE
     Indication: Blood pressure measurement
     Route: 065
     Dates: start: 20251003, end: 202510

REACTIONS (2)
  - Asthenia [Unknown]
  - Fall [Unknown]

NARRATIVE: CASE EVENT DATE: 20251001
